FAERS Safety Report 16332727 (Version 3)
Quarter: 2020Q1

REPORT INFORMATION
  Report Type: Spontaneous
  Country: US (occurrence: US)
  Receive Date: 20190520
  Receipt Date: 20200305
  Transmission Date: 20200409
  Serious: No
  Sender: FDA-Public Use
  Company Number: US-PFIZER INC-2019207919

PATIENT
  Age: 42 Year
  Sex: Female
  Weight: 102 kg

DRUGS (4)
  1. REVATIO [Suspect]
     Active Substance: SILDENAFIL CITRATE
     Indication: SOMNOLENCE
  2. REVATIO [Suspect]
     Active Substance: SILDENAFIL CITRATE
     Indication: BRAIN HYPOXIA
     Dosage: 20 MG, 3X/DAY [, ONE IN THE MORNING, ONE AT NOON, ONE IN THE EVENING]
     Route: 048
     Dates: start: 2018
  3. UPTRAVI [Concomitant]
     Active Substance: SELEXIPAG
     Dosage: 400 UG, 2X/DAY( TWO TABLETS DAILY, ONE IN THE MORNING, ONE IN THE EVENING)
  4. ATORVASTATIN [Concomitant]
     Active Substance: ATORVASTATIN
     Indication: BLOOD CHOLESTEROL ABNORMAL
     Dosage: 80 UG, 1X/DAY (ONE TABLET AT NIGHT)

REACTIONS (4)
  - Insomnia [Unknown]
  - Off label use [Unknown]
  - Therapeutic product effect incomplete [Unknown]
  - Product use in unapproved indication [Unknown]
